FAERS Safety Report 7083607-5 (Version None)
Quarter: 2010Q4

REPORT INFORMATION
  Report Type: 
  Country: None (occurrence: None)
  Receive Date: 20101104
  Receipt Date: 20101025
  Transmission Date: 20110411
  Serious: Yes (Other)
  Sender: FDA-Public Use
  Company Number: JP-ROCHE-737957

PATIENT
  Sex: Male
  Weight: 52.5 kg

DRUGS (4)
  1. AVASTIN [Suspect]
     Indication: RECTAL CANCER METASTATIC
     Route: 041
  2. LEUCOVORIN CALCIUM [Concomitant]
     Dosage: DOSAGE WAS UNCERTAIN
     Route: 041
  3. FLUOROURACIL [Concomitant]
     Dosage: DOSAGE WAS UNCERTAIN
     Route: 041
  4. ELPLAT [Concomitant]
     Dosage: DOSAGE WAS UNCERTAIN
     Route: 041

REACTIONS (1)
  - FEMORAL NECK FRACTURE [None]
